FAERS Safety Report 18414964 (Version 1)
Quarter: 2020Q4

REPORT INFORMATION
  Report Type: Spontaneous
  Country: US (occurrence: US)
  Receive Date: 20201022
  Receipt Date: 20201022
  Transmission Date: 20210114
  Serious: No
  Sender: FDA-Public Use
  Company Number: None

PATIENT
  Age: 73 Year
  Sex: Male
  Weight: 91 kg

DRUGS (1)
  1. VENETOCLAX (VENETOCLAX 10MGX14/50MGX7/100MGX21 STARTER PACK, 21) [Suspect]
     Active Substance: VENETOCLAX
     Indication: CHRONIC LYMPHOCYTIC LEUKAEMIA
     Dosage: ?          OTHER DOSE:MG;?
     Route: 048

REACTIONS (2)
  - Product distribution issue [None]
  - Therapy interrupted [None]

NARRATIVE: CASE EVENT DATE: 20200924
